FAERS Safety Report 15150167 (Version 1)
Quarter: 2018Q3

REPORT INFORMATION
  Report Type: Report from Study
  Country: NL (occurrence: NL)
  Receive Date: 20180716
  Receipt Date: 20180716
  Transmission Date: 20181010
  Serious: Yes (Death)
  Sender: FDA-Public Use
  Company Number: PHHY2018NL047203

PATIENT
  Sex: Male

DRUGS (1)
  1. ACLASTA [Suspect]
     Active Substance: ZOLEDRONIC ACID
     Indication: OSTEOPOROSIS
     Dosage: 5 MG, Q12MO
     Route: 042
     Dates: start: 20170804, end: 20170804

REACTIONS (1)
  - Death [Fatal]
